FAERS Safety Report 10231516 (Version 1)
Quarter: 2014Q2

REPORT INFORMATION
  Report Type: Spontaneous
  Country: US (occurrence: US)
  Receive Date: 20140611
  Receipt Date: 20140611
  Transmission Date: 20141212
  Serious: No
  Sender: FDA-Public Use
  Company Number: US-MYLANLABS-2013S1028008

PATIENT
  Age: 83 Year
  Sex: Male

DRUGS (1)
  1. VALACYCLOVIR TABLETS [Suspect]
     Route: 048
     Dates: start: 20131111, end: 20131112

REACTIONS (1)
  - Abdominal pain upper [Recovered/Resolved]
